FAERS Safety Report 9550795 (Version 2)
Quarter: 2014Q2

REPORT INFORMATION
  Report Type: Spontaneous
  Country: US (occurrence: US)
  Receive Date: 20130924
  Receipt Date: 20140402
  Transmission Date: 20141212
  Serious: No
  Sender: FDA-Public Use
  Company Number: US-SANOFI-AVENTIS-2013SA048409

PATIENT
  Age: 51 Year
  Sex: Female
  Weight: 61.23 kg

DRUGS (4)
  1. AUBAGIO [Suspect]
     Indication: MULTIPLE SCLEROSIS
     Route: 048
     Dates: start: 20130301
  2. CYMBALTA [Concomitant]
  3. MIRTAZAPINE [Concomitant]
  4. BUPROPION [Concomitant]

REACTIONS (5)
  - Vision blurred [Recovered/Resolved]
  - Balance disorder [Recovered/Resolved]
  - Fatigue [Unknown]
  - Hepatic enzyme increased [Not Recovered/Not Resolved]
  - Hypoaesthesia [Recovered/Resolved]
